FAERS Safety Report 21664005 (Version 1)
Quarter: 2022Q4

REPORT INFORMATION
  Report Type: Spontaneous
  Country: US (occurrence: US)
  Receive Date: 20221130
  Receipt Date: 20221130
  Transmission Date: 20230112
  Serious: No
  Sender: FDA-Public Use
  Company Number: US-SANOFI-01384061

PATIENT
  Age: 72 Year
  Sex: Female

DRUGS (1)
  1. LANTUS [Suspect]
     Active Substance: INSULIN GLARGINE
     Dosage: 15 IU, QD

REACTIONS (1)
  - Visual impairment [Unknown]
